FAERS Safety Report 4373722-9 (Version None)
Quarter: 2004Q2

REPORT INFORMATION
  Report Type: 
  Country: None (occurrence: None)
  Receive Date: 20040607
  Receipt Date: 20040607
  Transmission Date: 20050107
  Serious: Yes (Hospitalization)
  Sender: FDA-Public Use
  Company Number: None

PATIENT
  Sex: Female
  Weight: 56.246 kg

DRUGS (2)
  1. REMICADE [Suspect]
     Indication: RHEUMATOID ARTHRITIS
     Dosage: 200 MG LOADING DO IV
     Route: 042
     Dates: start: 20010604, end: 20030729
  2. REMICADE [Suspect]
     Dosage: 200 TO Q6-7 WEEKS IV
     Route: 042

REACTIONS (1)
  - HODGKIN'S DISEASE [None]
